FAERS Safety Report 9240018 (Version 1)
Quarter: 2013Q2

REPORT INFORMATION
  Report Type: Spontaneous
  Country: FR (occurrence: FR)
  Receive Date: 20130418
  Receipt Date: 20130418
  Transmission Date: 20140414
  Serious: Yes (Hospitalization)
  Sender: FDA-Public Use
  Company Number: FR-MYLANLABS-2013S1007519

PATIENT
  Sex: Female

DRUGS (2)
  1. ONDANSETRON [Suspect]
     Indication: PROPHYLAXIS
     Route: 008
     Dates: start: 20130404, end: 20130405
  2. NAROPEINE [Concomitant]
     Indication: PAIN
     Route: 008

REACTIONS (1)
  - Incorrect route of drug administration [Recovered/Resolved]
